FAERS Safety Report 4483427-1 (Version None)
Quarter: 2004Q4

REPORT INFORMATION
  Report Type: 
  Country: None (occurrence: None)
  Receive Date: 20041020
  Receipt Date: 20041012
  Transmission Date: 20050328
  Serious: Yes (Death)
  Sender: FDA-Public Use
  Company Number: 2004UW19212

PATIENT
  Age: 54 Year
  Sex: Female

DRUGS (9)
  1. SEROQUEL [Suspect]
     Indication: AFFECTIVE DISORDER
     Dosage: 6000 MG PO
     Route: 048
  2. SEROQUEL [Suspect]
     Indication: MAJOR DEPRESSION
     Dosage: 6000 MG PO
     Route: 048
  3. SEROQUEL [Suspect]
     Indication: AFFECTIVE DISORDER
     Dosage: 600 MG DAILY PO
     Route: 048
     Dates: end: 20040110
  4. SEROQUEL [Suspect]
     Indication: MAJOR DEPRESSION
     Dosage: 600 MG DAILY PO
     Route: 048
     Dates: end: 20040110
  5. CELEXA [Concomitant]
  6. WELLBUTRIN [Concomitant]
  7. NEURONTIN [Concomitant]
  8. VISTARIL [Concomitant]
  9. ARTHROTEC [Concomitant]

REACTIONS (2)
  - COMPLETED SUICIDE [None]
  - OVERDOSE [None]
